FAERS Safety Report 7563211-2 (Version None)
Quarter: 2011Q2

REPORT INFORMATION
  Report Type: 
  Country: None (occurrence: None)
  Receive Date: 20110622
  Receipt Date: 20110621
  Transmission Date: 20111010
  Serious: Yes (Hospitalization)
  Sender: FDA-Public Use
  Company Number: US-TEVA-287178USA

PATIENT
  Age: 79 Year
  Sex: Male
  Weight: 81.084 kg

DRUGS (10)
  1. LEUPROLIDE ACETATE [Concomitant]
     Dates: start: 20051227
  2. WARFARIN SODIUM [Suspect]
     Indication: AORTIC VALVE REPLACEMENT
     Dosage: 3.9286 MILLIGRAM;
     Route: 048
     Dates: start: 20060628, end: 20061008
  3. ATENOLOL [Concomitant]
     Dates: start: 20030101
  4. ALUDROX                            /00082501/ [Concomitant]
     Dates: start: 20051101
  5. TOLTERODINE TARTRATE [Concomitant]
     Dates: start: 20051101
  6. TAMSULOSIN HCL [Concomitant]
     Dates: start: 20041101
  7. VICODIN [Concomitant]
     Dates: start: 20051211
  8. SUNITINIB MALATE [Suspect]
     Indication: RENAL CELL CARCINOMA
     Dosage: 50 MILLIGRAM;
     Dates: start: 20051229
  9. PIROXICAM [Suspect]
     Indication: OSTEOPOROSIS
     Dosage: 20 MILLIGRAM;
     Route: 048
     Dates: start: 19900101, end: 20061014
  10. TERAZOSIN HCL [Concomitant]
     Dates: start: 20060628

REACTIONS (1)
  - ANAL FISSURE [None]
